FAERS Safety Report 8849787 (Version 1)
Quarter: 2012Q4

REPORT INFORMATION
  Report Type: 
  Country: US (occurrence: US)
  Receive Date: 20121019
  Receipt Date: 20121019
  Transmission Date: 20130627
  Serious: Yes (Hospitalization)
  Sender: FDA-Public Use
  Company Number: US-AMGEN-USASP2012066148

PATIENT
  Age: 57 Year
  Sex: Female

DRUGS (3)
  1. ENBREL [Suspect]
     Indication: MUSCULOSKELETAL PAIN
     Dosage: 50 mg, qwk
     Dates: start: 20120208, end: 20120917
  2. METHOTREXATE [Concomitant]
     Dosage: 20 mg, qwk
     Route: 058
  3. PREDNISONE [Concomitant]
     Dosage: 5 mg, qd
     Route: 048

REACTIONS (8)
  - Arthralgia [Not Recovered/Not Resolved]
  - Joint destruction [Not Recovered/Not Resolved]
  - Mobility decreased [Not Recovered/Not Resolved]
  - Haematoma [Not Recovered/Not Resolved]
  - Swelling [Not Recovered/Not Resolved]
  - Inflammation [Not Recovered/Not Resolved]
  - Pain [Not Recovered/Not Resolved]
  - Weight bearing difficulty [Not Recovered/Not Resolved]
